FAERS Safety Report 5386224-8 (Version None)
Quarter: 2007Q3

REPORT INFORMATION
  Report Type: 
  Country: None (occurrence: None)
  Receive Date: 20070713
  Receipt Date: 20070704
  Transmission Date: 20080115
  Serious: Yes (Disabling)
  Sender: FDA-Public Use
  Company Number: PHBS2007IT11505

PATIENT
  Age: 71 Year
  Sex: Male

DRUGS (3)
  1. AREDIA [Suspect]
     Indication: MULTIPLE MYELOMA
     Dosage: 90 MG, QMO
     Route: 042
     Dates: start: 20030317, end: 20030830
  2. ZOMETA [Suspect]
     Indication: MULTIPLE MYELOMA
     Dosage: 4 MG, QMO
     Route: 042
     Dates: start: 20030918, end: 20031030
  3. ALKERAN [Concomitant]

REACTIONS (5)
  - ABSCESS [None]
  - BONE DISORDER [None]
  - FISTULA [None]
  - OSTEONECROSIS [None]
  - SEQUESTRECTOMY [None]
